FAERS Safety Report 7350355-3 (Version None)
Quarter: 2011Q1

REPORT INFORMATION
  Report Type: 
  Country: None (occurrence: None)
  Receive Date: 20110222
  Receipt Date: 20101029
  Transmission Date: 20110831
  Serious: No
  Sender: FDA-Public Use
  Company Number: 017957

PATIENT
  Age: 52 Year
  Sex: Female
  Weight: 84 kg

DRUGS (1)
  1. LACOSAMIDE [Suspect]
     Dosage: (100 MG BID ORAL)
     Route: 048
     Dates: start: 20100111, end: 20100201

REACTIONS (1)
  - WEIGHT INCREASED [None]
